FAERS Safety Report 22315836 (Version 1)
Quarter: 2023Q2

REPORT INFORMATION
  Report Type: Spontaneous
  Country: CN (occurrence: CN)
  Receive Date: 20230512
  Receipt Date: 20230512
  Transmission Date: 20230721
  Serious: Yes (Hospitalization, Other)
  Sender: FDA-Public Use
  Company Number: CN-MLMSERVICE-20230427-4252780-1

PATIENT
  Age: 39 Year
  Sex: Male

DRUGS (4)
  1. GEMCITABINE HYDROCHLORIDE [Suspect]
     Active Substance: GEMCITABINE HYDROCHLORIDE
     Indication: Undifferentiated nasopharyngeal carcinoma
     Dosage: 6.4 G, CYCLICAL (DAY 1, DAY 8)
     Route: 065
     Dates: start: 2015, end: 2015
  2. CISPLATIN [Suspect]
     Active Substance: CISPLATIN
     Indication: Undifferentiated nasopharyngeal carcinoma
     Dosage: 120 MG, CYCLICAL
     Route: 065
     Dates: start: 2015, end: 2015
  3. CISPLATIN [Suspect]
     Active Substance: CISPLATIN
     Dosage: 240 MG, CYCLICAL
     Route: 065
     Dates: start: 2015, end: 2015
  4. NIMOTUZUMAB [Suspect]
     Active Substance: NIMOTUZUMAB
     Indication: Undifferentiated nasopharyngeal carcinoma
     Dosage: 1600 MG, CYCLICAL (200 MG, DAY 1 8 TIMES)
     Route: 065
     Dates: start: 201507

REACTIONS (2)
  - VIth nerve paralysis [Recovered/Resolved]
  - Off label use [Unknown]

NARRATIVE: CASE EVENT DATE: 20211001
